FAERS Safety Report 10092690 (Version 1)
Quarter: 2014Q2

REPORT INFORMATION
  Report Type: Spontaneous
  Country: US (occurrence: US)
  Receive Date: 20140421
  Receipt Date: 20140421
  Transmission Date: 20141212
  Serious: No
  Sender: FDA-Public Use
  Company Number: US-SANOFI-AVENTIS-2013SA045188

PATIENT
  Age: 63 Year
  Sex: Male
  Weight: 81.64 kg

DRUGS (2)
  1. ALLEGRA [Suspect]
     Indication: HYPERSENSITIVITY
     Route: 048
     Dates: start: 20130401, end: 20130410
  2. ALLEGRA [Suspect]
     Indication: HYPERSENSITIVITY
     Dates: start: 20130421, end: 20130428

REACTIONS (4)
  - Insomnia [Recovered/Resolved]
  - Anxiety [Not Recovered/Not Resolved]
  - Palpitations [Not Recovered/Not Resolved]
  - Therapeutic reaction time decreased [Unknown]
